FAERS Safety Report 11024711 (Version 1)
Quarter: 2015Q2

REPORT INFORMATION
  Report Type: Spontaneous
  Country: US (occurrence: None)
  Receive Date: 20150413
  Receipt Date: 20150413
  Transmission Date: 20150821
  Serious: No
  Sender: FDA-Public Use
  Company Number: None

PATIENT
  Age: 65 Year
  Sex: Male
  Weight: 79.38 kg

DRUGS (1)
  1. MAGNESIUM OXIDE. [Suspect]
     Active Substance: MAGNESIUM OXIDE
     Indication: MUSCLE RELAXANT THERAPY
     Route: 048
     Dates: start: 201404, end: 201504

REACTIONS (2)
  - Salivary gland disorder [None]
  - Dry mouth [None]

NARRATIVE: CASE EVENT DATE: 20150403
